FAERS Safety Report 5651860-8 (Version None)
Quarter: 2008Q1

REPORT INFORMATION
  Report Type: 
  Country: None (occurrence: None)
  Receive Date: 20080305
  Receipt Date: 20080222
  Transmission Date: 20080703
  Serious: Yes (Death)
  Sender: FDA-Public Use
  Company Number: L08-USA-00315-21

PATIENT
  Age: 65 Year
  Sex: Male

DRUGS (14)
  1. ESCITALOPRAM OXALATE [Suspect]
  2. RISPERIDONE [Suspect]
  3. METAXALONE [Suspect]
  4. HEPARIN [Suspect]
  5. OXYCODONE HCL [Suspect]
  6. BUPROPION HCL [Suspect]
  7. CLONIDINE [Suspect]
  8. CORTICOSTEROIDS [Suspect]
  9. METHADON HCL TAB [Suspect]
  10. ALBUTEROL [Suspect]
  11. HALOPERIDOL [Suspect]
  12. ACYCLOVIR [Suspect]
  13. VANCOMYCIN [Suspect]
  14. LAMOTRIGINE [Suspect]

REACTIONS (1)
  - DRUG TOXICITY [None]
